FAERS Safety Report 9383450 (Version 4)
Quarter: 2014Q1

REPORT INFORMATION
  Report Type: Spontaneous
  Country: US (occurrence: US)
  Receive Date: 20130704
  Receipt Date: 20140320
  Transmission Date: 20141002
  Serious: Yes (Other)
  Sender: FDA-Public Use
  Company Number: US-PFIZER INC-2013189435

PATIENT
  Age: 38 Year
  Sex: Female
  Weight: 64.85 kg

DRUGS (6)
  1. ENBREL [Suspect]
     Indication: RHEUMATOID ARTHRITIS
     Dosage: 50 MG, WEEKLY
     Dates: start: 20120130, end: 20130429
  2. METHOTREXATE SODIUM [Suspect]
     Dosage: UNK
  3. LEVOTHYROXIN [Concomitant]
     Dosage: 150 MCG, QD
     Route: 048
     Dates: start: 19970201
  4. PREDNISONE [Concomitant]
     Dosage: 1 MG, QD
     Route: 048
     Dates: start: 20130626, end: 20130816
  5. PREDNISONE [Concomitant]
     Dosage: 10 MG, QD
     Dates: start: 20130626, end: 20130816
  6. PRENATAL VITAMINS [Concomitant]
     Dosage: QD
     Route: 048
     Dates: start: 20130201

REACTIONS (6)
  - Rheumatoid arthritis [Unknown]
  - Multiple epiphyseal dysplasia [Unknown]
  - Premature delivery [Unknown]
  - Premature rupture of membranes [Unknown]
  - Drug ineffective [Unknown]
  - Malaise [Unknown]
